FAERS Safety Report 8595849-8 (Version None)
Quarter: 2012Q3

REPORT INFORMATION
  Report Type: 
  Country: None (occurrence: None)
  Receive Date: 20120807
  Receipt Date: 20120807
  Transmission Date: 20120928
  Serious: Yes (Hospitalization)
  Sender: FDA-Public Use
  Company Number: None

PATIENT
  Sex: Male
  Weight: 113.3993 kg

DRUGS (2)
  1. PRADAXA [Suspect]
     Indication: ATRIAL FIBRILLATION
     Dosage: PRADAXA 75M 2/DAY MOUTH
     Route: 048
     Dates: start: 20120401
  2. PRADAXA [Suspect]
     Indication: ATRIAL FIBRILLATION
     Dosage: PRADAXA 150 MG 2/DAY MOUTH
     Route: 048
     Dates: start: 20120201

REACTIONS (3)
  - ABDOMINAL DISCOMFORT [None]
  - FAECES DISCOLOURED [None]
  - MOUTH HAEMORRHAGE [None]
